FAERS Safety Report 8518400 (Version 3)
Quarter: 2013Q1

REPORT INFORMATION
  Report Type: Spontaneous
  Country: US (occurrence: US)
  Receive Date: 20120417
  Receipt Date: 20130326
  Transmission Date: 20140127
  Serious: No
  Sender: FDA-Public Use
  Company Number: US-ASTRAZENECA-2012SE04984

PATIENT
  Age: 34 Year
  Sex: Female

DRUGS (1)
  1. NEXIUM [Suspect]
     Route: 048

REACTIONS (6)
  - Oropharyngeal pain [Unknown]
  - Dyspepsia [Unknown]
  - Influenza [Unknown]
  - Sinus disorder [Unknown]
  - Malaise [Unknown]
  - Intentional drug misuse [Unknown]
